FAERS Safety Report 16846274 (Version 1)
Quarter: 2019Q3

REPORT INFORMATION
  Report Type: Spontaneous
  Country: US (occurrence: US)
  Receive Date: 20190924
  Receipt Date: 20190924
  Transmission Date: 20191005
  Serious: No
  Sender: FDA-Public Use
  Company Number: US-SA-2019SA261630

PATIENT
  Age: 60 Year
  Sex: Male

DRUGS (5)
  1. DUPIXENT [Suspect]
     Active Substance: DUPILUMAB
     Indication: CHRONIC RHINOSINUSITIS WITH NASAL POLYPS
     Dosage: 300 MG, QOW
     Route: 058
     Dates: start: 20190912
  2. ALBUTEROL SULFATE. [Concomitant]
     Active Substance: ALBUTEROL SULFATE
  3. EPINEPHRINE. [Concomitant]
     Active Substance: EPINEPHRINE
  4. BUDESONIDE. [Concomitant]
     Active Substance: BUDESONIDE
  5. MONTELUKAST SODIUM. [Concomitant]
     Active Substance: MONTELUKAST SODIUM

REACTIONS (7)
  - Hypogeusia [Unknown]
  - Rhinorrhoea [Unknown]
  - Sneezing [Unknown]
  - Hyposmia [Unknown]
  - Facial pain [Unknown]
  - Ear discomfort [Unknown]
  - Cough [Unknown]
